FAERS Safety Report 9005086 (Version 3)
Quarter: 2013Q2

REPORT INFORMATION
  Report Type: Spontaneous
  Country: US (occurrence: US)
  Receive Date: 20130109
  Receipt Date: 20130618
  Transmission Date: 20140414
  Serious: Yes (Other)
  Sender: FDA-Public Use
  Company Number: US-BAYER-2013-002655

PATIENT
  Age: 28 Year
  Sex: Female
  Weight: 60.32 kg

DRUGS (1)
  1. MIRENA [Suspect]
     Indication: CONTRACEPTION
     Dosage: 20 MCG/24HR, CONT
     Route: 015
     Dates: start: 20110118, end: 20130103

REACTIONS (13)
  - Genital haemorrhage [Recovered/Resolved]
  - Amenorrhoea [None]
  - Abdominal pain lower [None]
  - Dysmenorrhoea [None]
  - Menorrhagia [None]
  - Post procedural haemorrhage [None]
  - Pelvic pain [None]
  - Pollakiuria [None]
  - Menstruation irregular [None]
  - Dyspareunia [None]
  - Unevaluable event [None]
  - Dizziness [None]
  - Headache [None]
